FAERS Safety Report 11495319 (Version 1)
Quarter: 2015Q3

REPORT INFORMATION
  Report Type: Spontaneous
  Country: US (occurrence: US)
  Receive Date: 20150911
  Receipt Date: 20150911
  Transmission Date: 20151125
  Serious: No
  Sender: FDA-Public Use
  Company Number: US-ROCHE-1021079

PATIENT
  Sex: Male
  Weight: 74.91 kg

DRUGS (1)
  1. PEGASYS [Suspect]
     Active Substance: PEGINTERFERON ALFA-2A
     Indication: PRODUCT USED FOR UNKNOWN INDICATION
     Route: 065

REACTIONS (6)
  - Rash [Unknown]
  - Proctalgia [Unknown]
  - Haemorrhoids [Unknown]
  - Rectal prolapse [Unknown]
  - Constipation [Unknown]
  - Gait disturbance [Unknown]
